FAERS Safety Report 8001467-2 (Version None)
Quarter: 2011Q4

REPORT INFORMATION
  Report Type: 
  Country: None (occurrence: None)
  Receive Date: 20111222
  Receipt Date: 20111213
  Transmission Date: 20120403
  Serious: Yes (Hospitalization)
  Sender: FDA-Public Use
  Company Number: US-JNJFOC-20110707086

PATIENT
  Sex: Female
  Weight: 41.2 kg

DRUGS (5)
  1. LANSOPRAZOLE [Concomitant]
  2. MERCAPTOPURINE [Concomitant]
  3. REMICADE [Suspect]
     Indication: INFLAMMATORY BOWEL DISEASE
     Route: 042
     Dates: start: 20110710
  4. REMICADE [Suspect]
     Route: 042
     Dates: start: 20100714
  5. PREDNISONE [Concomitant]

REACTIONS (1)
  - CROHN'S DISEASE [None]
